FAERS Safety Report 4976711-6 (Version None)
Quarter: 2006Q2

REPORT INFORMATION
  Report Type: 
  Country: None (occurrence: None)
  Receive Date: 20060419
  Receipt Date: 20051001
  Transmission Date: 20061013
  Serious: No
  Sender: FDA-Public Use
  Company Number: PR-MERCK-0510USA01803

PATIENT
  Age: 54 Year
  Sex: Male
  Weight: 76 kg

DRUGS (3)
  1. VIOXX [Suspect]
     Indication: BACK PAIN
     Route: 048
     Dates: start: 19990101, end: 20040101
  2. VIOXX [Suspect]
     Route: 048
     Dates: start: 19990101, end: 20040101
  3. VIOXX [Suspect]
     Route: 048
     Dates: start: 19990101, end: 20040101

REACTIONS (4)
  - AFFECTIVE DISORDER [None]
  - CHEST PAIN [None]
  - HYPERTENSION [None]
  - PNEUMONIA [None]
